FAERS Safety Report 6554893-2 (Version None)
Quarter: 2010Q1

REPORT INFORMATION
  Report Type: 
  Country: None (occurrence: None)
  Receive Date: 20100125
  Receipt Date: 20100106
  Transmission Date: 20100710
  Serious: No
  Sender: FDA-Public Use
  Company Number: CIO09021096

PATIENT
  Age: 37 Year
  Sex: Female
  Weight: 77.1 kg

DRUGS (2)
  1. SINEX NASAL SPRAY OR MIST, VERSION UNKNOWN (CAMPHOR 0.067 MG, EUCALYPT [Suspect]
     Indication: SINUS CONGESTION
     Dosage: INTRANASAL
     Route: 045
  2. SINEX VAPOSPRAY 12 HOUR DECONGESTANT ULTRA FINE MIST (CAMPHOR, EUCALYP [Suspect]
     Indication: SINUS CONGESTION
     Dosage: INTRANASAL
     Route: 045

REACTIONS (8)
  - EAR INFECTION [None]
  - INCORRECT DOSE ADMINISTERED [None]
  - INCORRECT DRUG ADMINISTRATION DURATION [None]
  - NASAL DISORDER [None]
  - RESPIRATORY TRACT CONGESTION [None]
  - RESPIRATORY TRACT INFECTION [None]
  - SCAR [None]
  - SINUSITIS [None]
